FAERS Safety Report 4643144-1 (Version None)
Quarter: 2005Q2

REPORT INFORMATION
  Report Type: 
  Country: None (occurrence: None)
  Receive Date: 20050421
  Receipt Date: 20050221
  Transmission Date: 20051028
  Serious: Yes (Other)
  Sender: FDA-Public Use
  Company Number: 2005041478

PATIENT
  Sex: Female

DRUGS (1)
  1. EPANUTIN (PHENYTOIN SODIUM) [Suspect]
     Indication: ILL-DEFINED DISORDER
     Dosage: 300 MG (300 MG, 1 IN 1 D), ORAL
     Route: 048

REACTIONS (1)
  - DRUG EXPOSURE DURING PREGNANCY [None]
